FAERS Safety Report 23909998 (Version 2)
Quarter: 2024Q2

REPORT INFORMATION
  Report Type: Report from Study
  Country: US (occurrence: US)
  Receive Date: 20240528
  Receipt Date: 20240624
  Transmission Date: 20240716
  Serious: Yes (Hospitalization, Other)
  Sender: FDA-Public Use
  Company Number: US-ABBVIE-5774181

PATIENT
  Sex: Male

DRUGS (1)
  1. HUMIRA [Suspect]
     Active Substance: ADALIMUMAB
     Indication: Crohn^s disease
     Dosage: FORM STRENGTH: 40 MILLIGRAM?CITRATE FREE
     Route: 058

REACTIONS (9)
  - Sepsis [Recovering/Resolving]
  - Dysstasia [Recovered/Resolved]
  - Obstruction [Recovering/Resolving]
  - Infection [Recovering/Resolving]
  - Surgery [Recovering/Resolving]
  - Pain in extremity [Not Recovered/Not Resolved]
  - Crohn^s disease [Recovering/Resolving]
  - Mental impairment [Unknown]
  - Gait inability [Recovered/Resolved]
